FAERS Safety Report 7000408-4 (Version None)
Quarter: 2010Q3

REPORT INFORMATION
  Report Type: 
  Country: None (occurrence: None)
  Receive Date: 20100920
  Receipt Date: 20100315
  Transmission Date: 20110219
  Serious: No
  Sender: FDA-Public Use
  Company Number: US-ASTRAZENECA-2010SE11284

PATIENT
  Age: 64 Year
  Sex: Female
  Weight: 73.5 kg

DRUGS (5)
  1. SEROQUEL [Suspect]
     Indication: MAJOR DEPRESSION
     Route: 048
     Dates: start: 20100113
  2. CYMBALTA [Concomitant]
  3. MAGOXIDE [Concomitant]
  4. MAGASE [Concomitant]
  5. ISOSOL [Concomitant]

REACTIONS (2)
  - JOINT SWELLING [None]
  - OEDEMA PERIPHERAL [None]
